FAERS Safety Report 19815609 (Version 1)
Quarter: 2021Q3

REPORT INFORMATION
  Report Type: Spontaneous
  Country: US (occurrence: US)
  Receive Date: 20210909
  Receipt Date: 20210909
  Transmission Date: 20211014
  Serious: Yes (Other)
  Sender: FDA-Public Use
  Company Number: NVSC2021US201754

PATIENT
  Age: 49 Year
  Sex: Male

DRUGS (1)
  1. TRIAMCINOLONE [Suspect]
     Active Substance: TRIAMCINOLONE
     Indication: VISUAL IMPAIRMENT
     Dosage: IN BOTH EYES, 2 AND 1 MONTH AGO
     Route: 065

REACTIONS (2)
  - Product use in unapproved indication [Unknown]
  - Retinitis [Recovering/Resolving]
